FAERS Safety Report 6392344-1 (Version None)
Quarter: 2009Q4

REPORT INFORMATION
  Report Type: 
  Country: None (occurrence: None)
  Receive Date: 20091007
  Receipt Date: 20090924
  Transmission Date: 20100525
  Serious: Yes (Hospitalization, Other)
  Sender: FDA-Public Use
  Company Number: PHHY2009DE41624

PATIENT
  Age: 54 Year
  Sex: Male

DRUGS (6)
  1. ZOMETA [Suspect]
     Indication: MULTIPLE MYELOMA
     Dosage: 4 MG, QMO
     Route: 042
     Dates: start: 20010911
  2. REVLIMID [Suspect]
     Indication: MULTIPLE MYELOMA
     Dosage: 25 MG, QD
     Route: 048
     Dates: start: 20090203, end: 20090323
  3. DEXAMETHASONE 0.5MG TAB [Concomitant]
     Indication: MULTIPLE MYELOMA
     Dosage: 20 MG, UNK
  4. TRANSTEC [Concomitant]
     Dosage: 1 IN 4 DAYS
     Route: 062
  5. VALTREX [Concomitant]
     Dosage: UNK
     Dates: start: 20020601
  6. CLEXANE [Concomitant]
     Indication: ANTICOAGULANT THERAPY
     Dosage: 6000000 IU, UNK
     Dates: start: 20090708

REACTIONS (2)
  - HYPOKALAEMIA [None]
  - OSTEONECROSIS [None]
